FAERS Safety Report 8584656-8 (Version None)
Quarter: 2012Q3

REPORT INFORMATION
  Report Type: 
  Country: None (occurrence: None)
  Receive Date: 20120810
  Receipt Date: 20120731
  Transmission Date: 20120928
  Serious: Yes (Hospitalization, Other)
  Sender: FDA-Public Use
  Company Number: US-BAYER-2012-045892

PATIENT
  Age: 27 Year
  Sex: Female

DRUGS (11)
  1. PERCOCET [Concomitant]
     Indication: NAUSEA
     Dosage: 5/325 1-2 Q 4-6 HOURS PRN
     Route: 048
     Dates: start: 20071221
  2. YAZ [Suspect]
     Dosage: UNK
  3. YASMIN [Suspect]
     Dosage: UNK
  4. XANAX [Concomitant]
     Dosage: 0.5 MG, BID
     Route: 048
  5. BENADRYL [Concomitant]
     Dosage: 25 MG, IVP
     Route: 042
     Dates: start: 20071221
  6. ELAVIL [Concomitant]
     Dosage: 10 MG, Q HS
  7. TOPAMAX [Concomitant]
     Dosage: 25 MG, BID
     Route: 048
     Dates: start: 20080201
  8. CELEXA [Concomitant]
     Dosage: 20 MG, DAILY
     Dates: start: 20080201
  9. CELEXA [Concomitant]
     Dosage: 20 MG, DAILY
     Route: 048
     Dates: start: 20071217
  10. DEMEROL [Concomitant]
     Dosage: UNK
     Dates: start: 20071217
  11. DILAUDID [Concomitant]
     Dosage: 2 MG, IVP ( INTRAVENOUS PUSH)
     Route: 042
     Dates: start: 20071221

REACTIONS (9)
  - INJURY [None]
  - QUALITY OF LIFE DECREASED [None]
  - ANXIETY [None]
  - SUPERIOR SAGITTAL SINUS THROMBOSIS [None]
  - CEREBROVASCULAR ACCIDENT [None]
  - EMOTIONAL DISTRESS [None]
  - FEAR [None]
  - PAIN [None]
  - ANHEDONIA [None]
